FAERS Safety Report 4597259-7 (Version None)
Quarter: 2005Q1

REPORT INFORMATION
  Report Type: 
  Country: None (occurrence: None)
  Receive Date: 20050301
  Receipt Date: 20050203
  Transmission Date: 20050727
  Serious: Yes (Other)
  Sender: FDA-Public Use
  Company Number: 212680

PATIENT
  Age: 38 Year
  Sex: Female

DRUGS (1)
  1. HERCEPTIN [Suspect]
     Indication: BREAST CANCER METASTATIC
     Dosage: 102 MG, 1/WEEK, INTRAVENOUS
     Route: 042
     Dates: start: 20020704

REACTIONS (1)
  - JAUNDICE CHOLESTATIC [None]
